APPROVED DRUG PRODUCT: LOW-OGESTREL-21
Active Ingredient: ETHINYL ESTRADIOL; NORGESTREL
Strength: 0.03MG;0.3MG
Dosage Form/Route: TABLET;ORAL-21
Application: A075288 | Product #001
Applicant: DR REDDYS LABORATORIES SA
Approved: Jul 28, 1999 | RLD: No | RS: No | Type: DISCN